FAERS Safety Report 9474968 (Version 1)
Quarter: 2013Q3

REPORT INFORMATION
  Report Type: Report from Study
  Country: US (occurrence: US)
  Receive Date: 20130824
  Receipt Date: 20130824
  Transmission Date: 20140515
  Serious: Yes (Death)
  Sender: FDA-Public Use
  Company Number: US-ROCHE-1265611

PATIENT
  Sex: Female

DRUGS (9)
  1. TNKASE [Suspect]
     Indication: MYOCARDIAL INFARCTION
     Dosage: KIT
     Route: 042
  2. TNKASE [Suspect]
     Indication: CHEST PAIN
  3. DILAUDID [Concomitant]
     Route: 042
  4. DILAUDID [Concomitant]
     Route: 042
  5. ZOFRAN [Concomitant]
     Route: 042
  6. HEPARIN [Concomitant]
     Dosage: UNITS IN 500 ML AT 1000 UNITS PER HOUR
     Route: 042
  7. HEPARIN [Concomitant]
     Dosage: PB
     Route: 042
  8. KCL-RETARD ZYMA [Concomitant]
     Route: 048
  9. ASPIRIN [Concomitant]
     Dosage: 4 TABS
     Route: 048

REACTIONS (1)
  - Death [Fatal]
